FAERS Safety Report 11458122 (Version 6)
Quarter: 2016Q1

REPORT INFORMATION
  Report Type: Report from Study
  Country: US (occurrence: US)
  Receive Date: 20150904
  Receipt Date: 20160204
  Transmission Date: 20160525
  Serious: Yes (Hospitalization)
  Sender: FDA-Public Use
  Company Number: PHEH2015US017281

PATIENT
  Age: 30 Year
  Sex: Female
  Weight: 101.59 kg

DRUGS (1)
  1. GILENYA [Suspect]
     Active Substance: FINGOLIMOD HYDROCHLORIDE
     Indication: MULTIPLE SCLEROSIS
     Dosage: 0.5 MG, QD
     Route: 048
     Dates: start: 20150902, end: 20160125

REACTIONS (19)
  - Sensory loss [Unknown]
  - Headache [Recovered/Resolved]
  - Urinary tract infection [Unknown]
  - Weight increased [Unknown]
  - Pain in extremity [Unknown]
  - Vaginal infection [Unknown]
  - Asthenia [Unknown]
  - Depression [Unknown]
  - Skin infection [Unknown]
  - Limb discomfort [Unknown]
  - Concomitant disease aggravated [Unknown]
  - Stress [Unknown]
  - Abdominal pain upper [Unknown]
  - Spinal cord disorder [Unknown]
  - Insomnia [Unknown]
  - Fatigue [Unknown]
  - Memory impairment [Unknown]
  - Pain [Unknown]
  - Dizziness [Recovered/Resolved]

NARRATIVE: CASE EVENT DATE: 20150902
